FAERS Safety Report 9798812 (Version 3)
Quarter: 2015Q3

REPORT INFORMATION
  Report Type: Spontaneous
  Country: US (occurrence: US)
  Receive Date: 20140106
  Receipt Date: 20150806
  Transmission Date: 20151125
  Serious: Yes (Hospitalization)
  Sender: FDA-Public Use
  Company Number: US-GILEAD-2010-0032227

PATIENT
  Age: 54 Year
  Sex: Female
  Weight: 67.13 kg

DRUGS (36)
  1. SULFAMETHOXAZOLE/TRIMETHOPRIM [Concomitant]
  2. PREVACID [Concomitant]
     Active Substance: LANSOPRAZOLE
  3. REGLAN [Concomitant]
     Active Substance: METOCLOPRAMIDE HYDROCHLORIDE
  4. POTASSIUM CHLORIDE. [Concomitant]
     Active Substance: POTASSIUM CHLORIDE
  5. ZOCOR [Concomitant]
     Active Substance: SIMVASTATIN
  6. NIFEDIPINE. [Concomitant]
     Active Substance: NIFEDIPINE
  7. REVATIO [Concomitant]
     Active Substance: SILDENAFIL CITRATE
  8. METOLAZONE. [Concomitant]
     Active Substance: METOLAZONE
  9. IRON [Concomitant]
     Active Substance: IRON
  10. COUMADIN [Concomitant]
     Active Substance: WARFARIN SODIUM
  11. PLAQUENIL [Concomitant]
     Active Substance: HYDROXYCHLOROQUINE SULFATE
  12. VIAGRA [Concomitant]
     Active Substance: SILDENAFIL CITRATE
  13. HCTZ/RESERPINE/HYDRAL [Concomitant]
  14. METOPROLOL [Concomitant]
     Active Substance: METOPROLOL
  15. DIOVAN [Concomitant]
     Active Substance: VALSARTAN
  16. PHOSLO [Concomitant]
     Active Substance: CALCIUM ACETATE
  17. FOSAMAX [Concomitant]
     Active Substance: ALENDRONATE SODIUM
  18. CELLCEPT [Concomitant]
     Active Substance: MYCOPHENOLATE MOFETIL\MYCOPHENOLATE MOFETIL HYDROCHLORIDE
  19. CLARITIN [Concomitant]
     Active Substance: LORATADINE
  20. PRAZONE [Concomitant]
  21. HYDRALAZINE [Concomitant]
     Active Substance: HYDRALAZINE HYDROCHLORIDE
  22. HCTZ [Concomitant]
     Active Substance: HYDROCHLOROTHIAZIDE
  23. CEPHALEXIN. [Concomitant]
     Active Substance: CEPHALEXIN
  24. VITAMIN C [Concomitant]
     Active Substance: ASCORBIC ACID
  25. COZAAR [Concomitant]
     Active Substance: LOSARTAN POTASSIUM
  26. ZOLOFT [Concomitant]
     Active Substance: SERTRALINE HYDROCHLORIDE
  27. PREDNISONE. [Concomitant]
     Active Substance: PREDNISONE
  28. DAILY MULTIVITAMIN [Concomitant]
     Active Substance: VITAMINS
  29. LETAIRIS [Suspect]
     Active Substance: AMBRISENTAN
     Indication: PULMONARY ARTERIAL HYPERTENSION
     Route: 048
     Dates: start: 20070925
  30. ADCIRCA [Concomitant]
     Active Substance: TADALAFIL
  31. LASIX [Concomitant]
     Active Substance: FUROSEMIDE
  32. NORVASC [Concomitant]
     Active Substance: AMLODIPINE BESYLATE
  33. BENAZEPRIL [Concomitant]
     Active Substance: BENAZEPRIL HYDROCHLORIDE
  34. FOLIC ACID. [Concomitant]
     Active Substance: FOLIC ACID
  35. SIMETHICONE (DIMETHICONE) [Concomitant]
     Active Substance: DIMETHICONE
  36. TYLENOL WITH CODEINE [Concomitant]
     Active Substance: ACETAMINOPHEN\CODEINE PHOSPHATE

REACTIONS (1)
  - Anaemia [Unknown]
